FAERS Safety Report 12005012 (Version 2)
Quarter: 2016Q1

REPORT INFORMATION
  Report Type: Spontaneous
  Country: US (occurrence: US)
  Receive Date: 20160204
  Receipt Date: 20160226
  Transmission Date: 20160526
  Serious: Yes (Other)
  Sender: FDA-Public Use
  Company Number: US-BAUSCH-BL-2016-002381

PATIENT

DRUGS (1)
  1. NEOSTIGMINE [Suspect]
     Active Substance: NEOSTIGMINE
     Indication: CONSTIPATION
     Dosage: WITH SALINE
     Route: 042

REACTIONS (5)
  - Chest pain [Recovered/Resolved]
  - Nausea [Recovered/Resolved]
  - Bradycardia [Recovered/Resolved]
  - Seizure like phenomena [Recovered/Resolved]
  - Hypotension [Recovered/Resolved]
